FAERS Safety Report 12286130 (Version 3)
Quarter: 2016Q2

REPORT INFORMATION
  Report Type: Spontaneous
  Country: JP (occurrence: JP)
  Receive Date: 20160420
  Receipt Date: 20160516
  Transmission Date: 20160815
  Serious: Yes (Hospitalization)
  Sender: FDA-Public Use
  Company Number: JP-ELI_LILLY_AND_COMPANY-JP201604004591

PATIENT
  Age: 62 Year
  Sex: Female
  Weight: 39 kg

DRUGS (13)
  1. FAMOTIDINE. [Concomitant]
     Active Substance: FAMOTIDINE
     Indication: GASTROINTESTINAL DISORDER
     Dosage: 10 MG, BID
     Route: 048
     Dates: start: 20151026, end: 20160405
  2. OXINORM                            /00045603/ [Concomitant]
     Active Substance: OXYCODONE HYDROCHLORIDE
     Indication: CANCER PAIN
     Dosage: 160 MG, QD
     Route: 048
     Dates: end: 20160405
  3. AZULENE-GLUTAMINE [Concomitant]
     Indication: GASTROINTESTINAL DISORDER
     Dosage: 0.5 G, BID
     Route: 048
     Dates: start: 20141201, end: 20160405
  4. DENOTAS [Concomitant]
     Active Substance: CALCIUM CARBONATE\CHOLECALCIFEROL\MAGNESIUM CARBONATE
     Indication: CANCER PAIN
     Dosage: 2 DF, QD
     Route: 048
     Dates: start: 20141128, end: 20160405
  5. OXYCONTIN [Suspect]
     Active Substance: OXYCODONE HYDROCHLORIDE
     Indication: CANCER PAIN
     Dosage: 80 MG, BID
     Route: 048
     Dates: start: 20160322, end: 20160405
  6. MAGMITT [Concomitant]
     Active Substance: MAGNESIUM OXIDE
     Indication: CONSTIPATION
     Dosage: 330 MG, TID
     Route: 048
     Dates: end: 20160405
  7. LOXONIN [Concomitant]
     Active Substance: LOXOPROFEN SODIUM
     Indication: CANCER PAIN
     Dosage: 60 MG, BID
     Route: 048
     Dates: start: 20141201, end: 20160405
  8. FENTOS [Concomitant]
     Active Substance: FENTANYL
     Indication: CANCER PAIN
     Dosage: 8 MG, QD
     Route: 062
     Dates: start: 20160324
  9. LYRICA [Suspect]
     Active Substance: PREGABALIN
     Indication: PRODUCT USED FOR UNKNOWN INDICATION
     Dosage: UNK
     Route: 048
     Dates: end: 20160405
  10. PANTOSIN [Concomitant]
     Active Substance: PANTETHINE
     Indication: CONSTIPATION
     Dosage: 200 MG, TID
     Route: 048
     Dates: start: 20160325, end: 20160405
  11. CYMBALTA [Suspect]
     Active Substance: DULOXETINE HYDROCHLORIDE
     Indication: CANCER PAIN
     Dosage: 40 MG, QD
     Route: 048
     Dates: start: 20151022, end: 20160405
  12. LANDSEN [Suspect]
     Active Substance: CLONAZEPAM
     Indication: CANCER PAIN
     Dosage: 0.5 MG, QD
     Route: 048
     Dates: start: 20160325, end: 20160405
  13. OXYFAST [Concomitant]
     Active Substance: OXYCODONE
     Indication: CANCER PAIN
     Dosage: 50 MG, PRN
     Route: 042
     Dates: start: 20160406

REACTIONS (4)
  - Ileus [Recovered/Resolved]
  - Off label use [Recovered/Resolved]
  - Tachycardia [Recovered/Resolved]
  - Hyperhidrosis [Recovered/Resolved]

NARRATIVE: CASE EVENT DATE: 20151022
